FAERS Safety Report 10313750 (Version 1)
Quarter: 2014Q3

REPORT INFORMATION
  Report Type: Spontaneous
  Country: DE (occurrence: DE)
  Receive Date: 20140718
  Receipt Date: 20140718
  Transmission Date: 20150326
  Serious: Yes (Hospitalization)
  Sender: FDA-Public Use
  Company Number: DE-TEVA-494377GER

PATIENT
  Age: 45 Year
  Sex: Male

DRUGS (5)
  1. VALPROINSAEURE [Suspect]
     Active Substance: VALPROIC ACID
     Route: 048
     Dates: start: 20140523, end: 20140527
  2. VALPROINSAEURE [Suspect]
     Active Substance: VALPROIC ACID
     Route: 048
     Dates: start: 20140530, end: 20140603
  3. VALPROINSAEURE [Suspect]
     Active Substance: VALPROIC ACID
     Indication: CONDUCT DISORDER
     Route: 048
     Dates: start: 20140522, end: 20140522
  4. CIATYL [Concomitant]
     Active Substance: CLOPENTHIXOL HYDROCHLORIDE
  5. TAVOR [Concomitant]
     Active Substance: LORAZEPAM

REACTIONS (5)
  - Echolalia [Recovered/Resolved]
  - Echopraxia [Recovered/Resolved]
  - Stereotypy [Recovered/Resolved]
  - Activities of daily living impaired [Recovered/Resolved]
  - Apraxia [Recovered/Resolved]

NARRATIVE: CASE EVENT DATE: 20140527
